FAERS Safety Report 11689521 (Version 1)
Quarter: 2015Q4

REPORT INFORMATION
  Report Type: Spontaneous
  Country: FR (occurrence: FR)
  Receive Date: 20151102
  Receipt Date: 20151102
  Transmission Date: 20160304
  Serious: Yes (Hospitalization)
  Sender: FDA-Public Use
  Company Number: FR-PFIZER INC-2015364444

PATIENT
  Age: 76 Year
  Sex: Male

DRUGS (9)
  1. RAMIPRIL. [Concomitant]
     Active Substance: RAMIPRIL
     Dosage: UNK
  2. CALCIUM CARBONATE. [Concomitant]
     Active Substance: CALCIUM CARBONATE
     Dosage: UNK
  3. LYRICA [Concomitant]
     Active Substance: PREGABALIN
     Dosage: UNK
  4. TRIATEC [Suspect]
     Active Substance: RAMIPRIL
     Dosage: 1.25 MG, DAILY
     Route: 048
     Dates: end: 20150312
  5. FOSRENOL [Concomitant]
     Active Substance: LANTHANUM CARBONATE
     Dosage: UNK
  6. FLUINDIONE [Concomitant]
     Active Substance: FLUINDIONE
     Dosage: UNK
  7. INSULIN [Concomitant]
     Active Substance: INSULIN NOS
     Dosage: UNK
  8. INEXIUM [Concomitant]
     Active Substance: ESOMEPRAZOLE
     Dosage: UNK
  9. TAHOR [Concomitant]
     Active Substance: ATORVASTATIN CALCIUM
     Dosage: UNK

REACTIONS (2)
  - Hypotension [Recovered/Resolved]
  - Loss of consciousness [Recovered/Resolved]

NARRATIVE: CASE EVENT DATE: 20150311
